FAERS Safety Report 8119646-2 (Version None)
Quarter: 2012Q1

REPORT INFORMATION
  Report Type: 
  Country: None (occurrence: None)
  Receive Date: 20120207
  Receipt Date: 20120203
  Transmission Date: 20120608
  Serious: Yes (Other)
  Sender: FDA-Public Use
  Company Number: CA-BAYER-2012-009823

PATIENT
  Age: 43 Year
  Sex: Female
  Weight: 19.501 kg

DRUGS (11)
  1. ASCORBIC ACID [Concomitant]
  2. INTERFERON BETA-1B [Suspect]
     Indication: MULTIPLE SCLEROSIS
     Dosage: 0.25 MG, UNK
     Dates: start: 20060101, end: 20120201
  3. TIAZAC [Concomitant]
  4. VITAMIN B-12 [Concomitant]
  5. CELEXA [Concomitant]
  6. ALTACE [Concomitant]
  7. HYDROCHLOROTHIAZIDE [Concomitant]
  8. FLONASE [Concomitant]
  9. VITAMIN E [Concomitant]
  10. INTERFERON BETA-1B [Suspect]
     Dosage: UNK
     Route: 058
  11. RABEPRAZOLE SODIUM [Concomitant]

REACTIONS (4)
  - INFECTION [None]
  - PYREXIA [None]
  - CHILLS [None]
  - HYPOAESTHESIA [None]
